FAERS Safety Report 11246373 (Version 1)
Quarter: 2015Q3

REPORT INFORMATION
  Report Type: Spontaneous
  Country: None (occurrence: None)
  Receive Date: 20150706
  Receipt Date: 20150706
  Transmission Date: 20151125
  Serious: Yes (Disabling)
  Sender: FDA-Public Use
  Company Number: None

PATIENT
  Age: 51 Year
  Sex: Female

DRUGS (1)
  1. LEVAQUIN [Suspect]
     Active Substance: LEVOFLOXACIN

REACTIONS (3)
  - Pain [None]
  - Arthralgia [None]
  - Gait disturbance [None]

NARRATIVE: CASE EVENT DATE: 20150420
